FAERS Safety Report 25935399 (Version 1)
Quarter: 2025Q4

REPORT INFORMATION
  Report Type: Spontaneous
  Country: US (occurrence: None)
  Receive Date: 20251017
  Receipt Date: 20251017
  Transmission Date: 20260118
  Serious: Yes (Disabling, Other)
  Sender: FDA-CTU
  Company Number: None

PATIENT
  Sex: Female
  Weight: 108.36 kg

DRUGS (19)
  1. LATUDA [Suspect]
     Active Substance: LURASIDONE HYDROCHLORIDE
     Indication: Product used for unknown indication
     Dosage: OTHER QUANTITY : 1 TABLET(S);?FREQUENCY : TWICE A DAY;?
     Route: 048
  2. Bupropn hcl 150mg xl-mf (SP) tab- film-coated [Concomitant]
  3. Hydroxyzine pamoate 50mg cap [Concomitant]
  4. VITAMIN D3 [Concomitant]
     Active Substance: CHOLECALCIFEROL
  5. albuterol 108 (90 Base) MCG/ACT inhaler [Concomitant]
  6. Fluticasone Propionate 110MCG [Concomitant]
  7. Vitamin_(Liver care+Cleanse) [Concomitant]
  8. Vitamin(Lung Support)Sasifi(18720mg)cap [Concomitant]
  9. Vitamin(Blood flow care)Pslalae [Concomitant]
  10. Vitamin(Lung Support)Sasifi [Concomitant]
  11. Vitamin_MIR(Vaginal Probiotic) [Concomitant]
  12. Vitamin_Tropical Oasis(brain power) [Concomitant]
  13. Vitamin_Fearathe(Parasite cleanse+detox) [Concomitant]
  14. Vitamin_sasifi(cellular waste clearance)(1550mg) [Concomitant]
  15. Vitamin_Abuiu(super colon cleanse)(1179mg) [Concomitant]
  16. Vitamin_pheromone Gummies [Concomitant]
  17. Vitamin_clean nutra(vascu flow)Drops [Concomitant]
  18. Vitamin_gree people(kidney+liver cleanse)Drops [Concomitant]
  19. Vitamin_mucunix [Concomitant]

REACTIONS (21)
  - Feeling abnormal [None]
  - Joint stiffness [None]
  - Joint effusion [None]
  - Headache [None]
  - Pain [None]
  - Dizziness [None]
  - Balance disorder [None]
  - Grip strength decreased [None]
  - Dysarthria [None]
  - Abdominal pain upper [None]
  - Constipation [None]
  - Dyspepsia [None]
  - Amnesia [None]
  - Palpitations [None]
  - Angina pectoris [None]
  - Ear disorder [None]
  - Loss of consciousness [None]
  - Asthenia [None]
  - Fatigue [None]
  - Depression [None]
  - Social problem [None]
